FAERS Safety Report 25891122 (Version 4)
Quarter: 2025Q4

REPORT INFORMATION
  Report Type: Spontaneous
  Country: CL (occurrence: CL)
  Receive Date: 20251007
  Receipt Date: 20251229
  Transmission Date: 20260117
  Serious: Yes (Other)
  Sender: SANDOZ
  Company Number: CL-002147023-NVSC2025CL075437

PATIENT
  Age: 64 Year
  Sex: Male
  Weight: 89.3 kg

DRUGS (5)
  1. METFORMIN [Suspect]
     Active Substance: METFORMIN HYDROCHLORIDE
     Indication: Type 2 diabetes mellitus
     Dosage: 1 DOSAGE FORM OF 850 MG, QD (START DATE: 12-SEP-2025)
  2. OMEPRAZOLE [Suspect]
     Active Substance: OMEPRAZOLE
     Indication: Gastritis prophylaxis
     Dosage: 20 MG (START DATE: 12-SEP-2025)
  3. ENALAPRIL [Concomitant]
     Active Substance: ENALAPRIL
     Indication: Hypertension
     Dosage: UNK
  4. LEVOTHYROXINE [Concomitant]
     Active Substance: LEVOTHYROXINE
     Indication: Hypothyroidism
     Dosage: UNK, Q24H
     Dates: start: 2023
  5. FEXOFENADINE [Concomitant]
     Active Substance: FEXOFENADINE HYDROCHLORIDE
     Indication: Product used for unknown indication
     Dosage: 20 MG, Q24H
     Dates: start: 20251113

REACTIONS (21)
  - Iridocyclitis [Unknown]
  - Hyperglycaemia [Not Recovered/Not Resolved]
  - Blood lactate dehydrogenase increased [Unknown]
  - Anisocytosis [Unknown]
  - Spur cell anaemia [Unknown]
  - Reticulocyte count increased [Unknown]
  - Lymphocyte percentage decreased [Unknown]
  - Aspartate aminotransferase increased [Recovered/Resolved]
  - Respiratory tract infection [Recovered/Resolved]
  - Red cell distribution width increased [Not Recovered/Not Resolved]
  - Neutrophil percentage increased [Not Recovered/Not Resolved]
  - Reticulocyte percentage increased [Not Recovered/Not Resolved]
  - Poikilocytosis [Not Recovered/Not Resolved]
  - Polychromasia [Not Recovered/Not Resolved]
  - Elliptocytosis [Not Recovered/Not Resolved]
  - Blood glucose increased [Unknown]
  - Lymphocyte count decreased [Unknown]
  - Blood calcium decreased [Unknown]
  - Blood alkaline phosphatase increased [Unknown]
  - Blood pressure increased [Unknown]
  - Pruritus [Unknown]

NARRATIVE: CASE EVENT DATE: 20241210
